FAERS Safety Report 8485073-1 (Version None)
Quarter: 2012Q3

REPORT INFORMATION
  Report Type: 
  Country: None (occurrence: None)
  Receive Date: 20120703
  Receipt Date: 20120627
  Transmission Date: 20120928
  Serious: Yes (Other)
  Sender: FDA-Public Use
  Company Number: US-BAYER-2012-064806

PATIENT
  Age: 87 Year
  Sex: Male
  Weight: 80.272 kg

DRUGS (4)
  1. ASPIRIN [Suspect]
     Indication: ISCHAEMIC HEART DISEASE PROPHYLAXIS
     Dosage: 1 DF, QD, BOTTLE COUNT 32S
     Route: 048
     Dates: start: 20080101
  2. LIPITOR [Concomitant]
  3. ACCUPRIL [Concomitant]
  4. METOPROLOL TARTRATE [Concomitant]

REACTIONS (1)
  - BLEEDING TIME PROLONGED [None]
